FAERS Safety Report 9832445 (Version 1)
Quarter: 2014Q1

REPORT INFORMATION
  Report Type: Spontaneous
  Country: CA (occurrence: CA)
  Receive Date: 20140121
  Receipt Date: 20140121
  Transmission Date: 20141002
  Serious: Yes (Other)
  Sender: FDA-Public Use
  Company Number: CA-009507513-1401CAN007532

PATIENT
  Sex: 0

DRUGS (3)
  1. VICTRELIS [Suspect]
     Route: 065
  2. RIBAVIRIN [Suspect]
     Route: 065
  3. PEGASYS [Suspect]
     Route: 065

REACTIONS (1)
  - Lung neoplasm malignant [Unknown]
